FAERS Safety Report 6954703-5 (Version None)
Quarter: 2010Q3

REPORT INFORMATION
  Report Type: 
  Country: None (occurrence: None)
  Receive Date: 20100829
  Receipt Date: 20100820
  Transmission Date: 20110219
  Serious: Yes (Hospitalization)
  Sender: FDA-Public Use
  Company Number: US-US-EMD SERONO, INC.-7011609

PATIENT
  Sex: Male

DRUGS (7)
  1. REBIF [Suspect]
     Indication: MULTIPLE SCLEROSIS
     Route: 058
     Dates: end: 20080101
  2. REBIF [Suspect]
     Route: 058
     Dates: start: 20100709, end: 20100101
  3. REBIF [Suspect]
     Route: 058
     Dates: start: 20100802, end: 20100801
  4. REBIF [Suspect]
     Route: 058
     Dates: start: 20100804
  5. AMBIEN [Concomitant]
     Indication: SLEEP DISORDER
  6. XANAX [Concomitant]
     Indication: SLEEP DISORDER
  7. CADUET [Concomitant]
     Indication: HYPERTENSION
     Dates: start: 20100101

REACTIONS (2)
  - CONVULSION [None]
  - MULTIPLE SCLEROSIS RELAPSE [None]
